FAERS Safety Report 5795593-6 (Version None)
Quarter: 2008Q2

REPORT INFORMATION
  Report Type: 
  Country: None (occurrence: None)
  Receive Date: 20080630
  Receipt Date: 20080618
  Transmission Date: 20081010
  Serious: Yes (Other)
  Sender: FDA-Public Use
  Company Number: US-PFIZER INC-2008051929

PATIENT
  Sex: Female

DRUGS (1)
  1. LYRICA [Suspect]
     Indication: PAIN

REACTIONS (15)
  - ABDOMINAL DISTENSION [None]
  - BALANCE DISORDER [None]
  - DYSPHEMIA [None]
  - DYSPNOEA [None]
  - DYSSTASIA [None]
  - EMOTIONAL DISORDER [None]
  - FEELING ABNORMAL [None]
  - GAIT DISTURBANCE [None]
  - ILL-DEFINED DISORDER [None]
  - MALAISE [None]
  - PAIN [None]
  - SWELLING [None]
  - THINKING ABNORMAL [None]
  - VISUAL ACUITY REDUCED [None]
  - WEIGHT INCREASED [None]
